FAERS Safety Report 23604145 (Version 2)
Quarter: 2024Q1

REPORT INFORMATION
  Report Type: Report from Study
  Country: GB (occurrence: GB)
  Receive Date: 20240307
  Receipt Date: 20240314
  Transmission Date: 20240409
  Serious: Yes (Hospitalization)
  Sender: FDA-Public Use
  Company Number: GB-TEVA-VS-3164971

PATIENT
  Age: 44 Year
  Sex: Male
  Weight: 91 kg

DRUGS (22)
  1. PREDNISOLONE [Suspect]
     Active Substance: PREDNISOLONE
     Indication: Prophylaxis
     Dosage: 100 MILLIGRAM, IN D./QUOTID/O.D. (ON DAY OF EPCORITAMAB INFUSION ANDFOR 3 DAYS POST)
     Route: 048
     Dates: start: 20240130, end: 20240216
  2. ALLOPURINOL [Concomitant]
     Active Substance: ALLOPURINOL
     Dates: start: 20240130
  3. ACYCLOVIR [Concomitant]
     Active Substance: ACYCLOVIR
     Dates: start: 20240130
  4. COTRIMOXAZOLE [Concomitant]
     Active Substance: SULFAMETHOXAZOLE\TRIMETHOPRIM
  5. METFORMIN [Concomitant]
     Active Substance: METFORMIN HYDROCHLORIDE
     Dates: start: 200704
  6. GLICLAZIDE [Concomitant]
     Active Substance: GLICLAZIDE
     Dates: start: 200704, end: 20240215
  7. ATORVASTATIN [Concomitant]
     Active Substance: ATORVASTATIN
     Dates: start: 2015
  8. CODEINE [Concomitant]
     Active Substance: CODEINE
     Dates: start: 202311, end: 20240214
  9. LANSOPRAZOLE [Concomitant]
     Active Substance: LANSOPRAZOLE
     Dates: start: 20240130
  10. ACETAMINOPHEN [Concomitant]
     Active Substance: ACETAMINOPHEN
     Dates: start: 202311
  11. BETAMETHASONE\FUSIDIC ACID [Concomitant]
     Active Substance: BETAMETHASONE\FUSIDIC ACID
     Dates: start: 202305, end: 20240215
  12. APIXABAN [Concomitant]
     Active Substance: APIXABAN
     Dates: start: 20240130
  13. ELOCON [Concomitant]
     Active Substance: MOMETASONE FUROATE
     Dates: start: 202305
  14. EPCORITAMAB [Suspect]
     Active Substance: EPCORITAMAB
     Indication: Follicular lymphoma
     Route: 058
     Dates: start: 20240130, end: 20240130
  15. EPCORITAMAB [Suspect]
     Active Substance: EPCORITAMAB
     Indication: Follicular lymphoma
     Dosage: 0.8 MILLIGRAM, IN D./QUOTID/O.D. (CYCLE 1)
     Route: 058
     Dates: start: 20240206, end: 20240206
  16. EPCORITAMAB [Suspect]
     Active Substance: EPCORITAMAB
     Indication: Follicular lymphoma
     Dosage: 48 MILLIGRAM, IN D./QUOTID/O.D.
     Route: 058
     Dates: start: 20240213, end: 20240213
  17. LENALIDOMIDE [Suspect]
     Active Substance: LENALIDOMIDE
     Indication: Follicular lymphoma
     Dosage: 20 MILLIGRAM, IN D./QUOTID/O.D. (CYCLE 1)
     Route: 048
     Dates: start: 20240130, end: 20240219
  18. DAPAGLIFLOZIN [Concomitant]
     Active Substance: DAPAGLIFLOZIN
     Dates: start: 20240211, end: 20240215
  19. CHLORPHENIRAMINE MALEATE [Concomitant]
     Active Substance: CHLORPHENIRAMINE MALEATE
     Route: 065
     Dates: start: 20240130
  20. DULAGLUTIDE [Concomitant]
     Active Substance: DULAGLUTIDE
     Dates: start: 200704, end: 20240216
  21. LIRAGLUTIDE [Concomitant]
     Active Substance: LIRAGLUTIDE
     Dates: start: 200704
  22. NYSTATIN [Concomitant]
     Active Substance: NYSTATIN
     Route: 065
     Dates: start: 20240213

REACTIONS (2)
  - Cytokine release syndrome [Recovered/Resolved]
  - Hyperglycaemia [Recovered/Resolved]

NARRATIVE: CASE EVENT DATE: 20240209
